FAERS Safety Report 4915363-8 (Version None)
Quarter: 2006Q1

REPORT INFORMATION
  Report Type: 
  Country: None (occurrence: None)
  Receive Date: 20060217
  Receipt Date: 20060209
  Transmission Date: 20060701
  Serious: Yes (Hospitalization)
  Sender: FDA-Public Use
  Company Number: PHEH2006US01980

PATIENT
  Sex: Female

DRUGS (1)
  1. TRILEPTAL [Suspect]
     Indication: NEURALGIA
     Dates: start: 20040201

REACTIONS (13)
  - ABDOMINAL PAIN [None]
  - ANAEMIA [None]
  - ASTHENIA [None]
  - DYSARTHRIA [None]
  - HEPATIC ENZYME INCREASED [None]
  - HYPOTENSION [None]
  - LIVER DISORDER [None]
  - MUSCLE TWITCHING [None]
  - NAUSEA [None]
  - PYREXIA [None]
  - RENAL FAILURE [None]
  - VISUAL DISTURBANCE [None]
  - VOMITING [None]
